FAERS Safety Report 5588474-4 (Version None)
Quarter: 2008Q1

REPORT INFORMATION
  Report Type: 
  Country: None (occurrence: None)
  Receive Date: 20080111
  Receipt Date: 20070901
  Transmission Date: 20080703
  Serious: Yes (Other)
  Sender: FDA-Public Use
  Company Number: SK-ROCHE-540313

PATIENT

DRUGS (1)
  1. ROACCUTANE [Suspect]
     Indication: ACNE

REACTIONS (2)
  - NO ADVERSE EVENT [None]
  - PREGNANCY [None]
